FAERS Safety Report 9717323 (Version 1)
Quarter: 2013Q4

REPORT INFORMATION
  Report Type: Spontaneous
  Country: GB (occurrence: None)
  Receive Date: 20131125
  Receipt Date: 20131125
  Transmission Date: 20140711
  Serious: Yes (Other)
  Sender: FDA-Public Use
  Company Number: AUR-APL-2013-09704

PATIENT
  Age: 22 Month
  Sex: Female
  Weight: 13.14 kg

DRUGS (3)
  1. MONTELUKAST [Suspect]
     Indication: ASTHMA
     Route: 048
     Dates: start: 201303, end: 201304
  2. CLENIL MODULITE (BECLOMETASONE DIPROPIONATE) [Concomitant]
  3. SALBUTAMOL (SALBUTAMOL) [Concomitant]

REACTIONS (6)
  - Aggression [None]
  - Aggression [None]
  - Somnambulism [None]
  - Nocturnal fear [None]
  - Screaming [None]
  - Crying [None]
